FAERS Safety Report 9374487 (Version 1)
Quarter: 2013Q2

REPORT INFORMATION
  Report Type: Spontaneous
  Country: GB (occurrence: None)
  Receive Date: 20130624
  Receipt Date: 20130624
  Transmission Date: 20140414
  Serious: Yes (Other)
  Sender: FDA-Public Use
  Company Number: AUR-APL-2013-05143

PATIENT
  Age: 58 Year
  Sex: Male
  Weight: 85 kg

DRUGS (9)
  1. AMOXICILLIN+CLAVULANIC ACID [Suspect]
     Indication: PRODUCT USED FOR UNKNOWN INDICATION
     Dates: start: 20130603
  2. AMOROLFINE (AMOROLFINE) [Concomitant]
  3. BENDROFLUMETHIAZIDE (BENDROFLUMETHIAZIDE) [Concomitant]
  4. CHLORPHENAMINE (CHLORPHENAMINE) [Concomitant]
  5. GLICLAZIDE (GLICLAZIDE) [Concomitant]
  6. LANTUS (INSULINE GLARGINE) [Concomitant]
  7. METFORMIN (METFORMIN) [Concomitant]
  8. RAMIPRIL (RAMIPRIL) [Concomitant]
  9. SIMVASTATIN (SIMVASTATIN) [Concomitant]

REACTIONS (2)
  - Rash pruritic [None]
  - Urticaria [None]
